FAERS Safety Report 8805778 (Version 3)
Quarter: 2012Q4

REPORT INFORMATION
  Report Type: 
  Country: FR (occurrence: FR)
  Receive Date: 20120924
  Receipt Date: 20121018
  Transmission Date: 20130627
  Serious: Yes (Hospitalization, Disabling, Other)
  Sender: FDA-Public Use
  Company Number: FR-ASTRAZENECA-2012SE72437

PATIENT
  Age: 857 Month
  Sex: Female

DRUGS (12)
  1. INEXIUM [Suspect]
     Route: 048
     Dates: end: 201204
  2. INEXIUM [Interacting]
     Route: 048
     Dates: start: 201204
  3. SEROPLEX [Interacting]
     Indication: DEPRESSION
     Route: 048
     Dates: start: 201101, end: 20120418
  4. DUROGESIC [Concomitant]
     Indication: BACK PAIN
     Route: 048
     Dates: start: 201203, end: 20120418
  5. HYDROCORTIZONE ROUSSEL [Concomitant]
     Indication: ADRENAL INSUFFICIENCY
     Route: 048
  6. ZOLPIDEM [Concomitant]
     Indication: INSOMNIA
     Route: 048
  7. SERESTA [Concomitant]
     Indication: DEPRESSION
     Route: 048
  8. LEVOTHYROX [Concomitant]
     Indication: SECONDARY HYPOTHYROIDISM
     Route: 048
  9. PARKINANE LP [Concomitant]
     Route: 048
     Dates: start: 201108, end: 20120424
  10. MOVICOL [Concomitant]
  11. LANSOYL [Concomitant]
  12. PARACETAMOL [Concomitant]

REACTIONS (8)
  - Drug interaction [Unknown]
  - Extrapyramidal disorder [Recovered/Resolved with Sequelae]
  - Suicidal ideation [Unknown]
  - General physical health deterioration [Unknown]
  - Fall [Unknown]
  - Blood folate [Unknown]
  - Depression [Unknown]
  - Crying [Unknown]
